FAERS Safety Report 6036441-9 (Version None)
Quarter: 2009Q1

REPORT INFORMATION
  Report Type: 
  Country: None (occurrence: None)
  Receive Date: 20090112
  Receipt Date: 20081229
  Transmission Date: 20090719
  Serious: Yes (Hospitalization)
  Sender: FDA-Public Use
  Company Number: KV200801468

PATIENT
  Age: 70 Year
  Sex: Male
  Weight: 88 kg

DRUGS (7)
  1. ISOSORBIDE MONONITRATE [Suspect]
     Indication: CHEST PAIN
     Dosage: 30 MG, QD, ORAL
     Route: 048
  2. SIMVASTATIN [Concomitant]
  3. AMBIEN [Concomitant]
  4. COLACE(DOCUSATE SODIUM) [Concomitant]
  5. DILTIAZEM [Concomitant]
  6. SINEMET [Concomitant]
  7. AZILECT(RASAGILINE MESYLATE) [Concomitant]

REACTIONS (4)
  - BLOOD URINE PRESENT [None]
  - HEART RATE INCREASED [None]
  - PRODUCT QUALITY ISSUE [None]
  - RASH ERYTHEMATOUS [None]
